FAERS Safety Report 22354008 (Version 1)
Quarter: 2023Q2

REPORT INFORMATION
  Report Type: Report from Study
  Country: US (occurrence: US)
  Receive Date: 20230523
  Receipt Date: 20230523
  Transmission Date: 20230722
  Serious: Yes (Other)
  Sender: FDA-Public Use
  Company Number: US-ABBVIE-5176421

PATIENT
  Sex: Male

DRUGS (1)
  1. VENCLEXTA [Suspect]
     Active Substance: VENETOCLAX
     Indication: Chronic myeloid leukaemia
     Dosage: STRENGTH: 100 MG
     Route: 048
     Dates: start: 2021, end: 202303

REACTIONS (1)
  - Leukaemia [Not Recovered/Not Resolved]
